FAERS Safety Report 15749637 (Version 1)
Quarter: 2018Q4

REPORT INFORMATION
  Report Type: Spontaneous
  Country: US (occurrence: US)
  Receive Date: 20181205
  Receipt Date: 20181205
  Transmission Date: 20190205
  Serious: Yes (Death, Hospitalization)
  Sender: FDA-Public Use
  Company Number: None

PATIENT
  Age: 3 Year
  Sex: Male
  Weight: 17.8 kg

DRUGS (5)
  1. CYTARABINE. [Suspect]
     Active Substance: CYTARABINE
     Dates: end: 20101118
  2. METHOTREXATE. [Suspect]
     Active Substance: METHOTREXATE
     Dates: end: 20101125
  3. DAUNORUBICIN [Suspect]
     Active Substance: DAUNORUBICIN
     Dates: end: 20101209
  4. PREDNISONE. [Suspect]
     Active Substance: PREDNISONE
     Dates: end: 20101215
  5. PEG-L-ASPARAGINASE (K-H) [Suspect]
     Active Substance: PEGASPARGASE
     Dates: end: 20101121

REACTIONS (5)
  - Haemoptysis [None]
  - Hypoxic-ischaemic encephalopathy [None]
  - Brain herniation [None]
  - Brain oedema [None]
  - Cardio-respiratory arrest [None]

NARRATIVE: CASE EVENT DATE: 20101222
